FAERS Safety Report 9773566 (Version 1)
Quarter: 2013Q4

REPORT INFORMATION
  Report Type: Spontaneous
  Country: FR (occurrence: None)
  Receive Date: 20131217
  Receipt Date: 20131217
  Transmission Date: 20140711
  Serious: Yes (Hospitalization)
  Sender: FDA-Public Use
  Company Number: FK201305326

PATIENT
  Age: 63 Year
  Sex: Male

DRUGS (12)
  1. PIPERACILLIN/TAZOBACTAM [Suspect]
     Indication: ANTIBIOTIC THERAPY
     Route: 042
     Dates: start: 20120607, end: 20120707
  2. VASTAREL [Suspect]
     Indication: PRODUCT USED FOR UNKNOWN INDICATION
  3. ZOLPIDEM [Suspect]
     Indication: PRODUCT USED FOR UNKNOWN INDICATION
     Route: 048
     Dates: start: 20120618, end: 20120704
  4. PYOSTACINE [Suspect]
     Indication: ANTIBIOTIC THERAPY
     Dosage: 500 MG, 6 IN 1 D, ORAL
     Dates: start: 20120607, end: 20120704
  5. VANCOMYCINE [Suspect]
     Indication: ANTIBIOTIC THERAPY
     Dosage: 1 GM, 6 IN 1 D, INTRAVENOUS
     Dates: start: 20120607, end: 20120704
  6. TERCIAN (CYAMEMAZINE) [Concomitant]
  7. SEROPLEX (ESCITALOPRAM OXALATE) [Concomitant]
  8. BISOCE (BISOPROLOL FUMARATE) [Concomitant]
  9. DIGOXINE NATIVELLE (DIGOXIN) [Concomitant]
  10. ALDACTONE (SPIRONOLACTONE) [Concomitant]
  11. FUROSEMIDE (FUROSEMIDE) [Concomitant]
  12. SINTROM (ACENOCOUMAROL) [Concomitant]

REACTIONS (3)
  - Eosinophilia [None]
  - Thrombocytopenia [None]
  - Toxic skin eruption [None]
